FAERS Safety Report 8662303 (Version 2)
Quarter: 2012Q4

REPORT INFORMATION
  Report Type: 
  Country: US (occurrence: US)
  Receive Date: 20120712
  Receipt Date: 20121203
  Transmission Date: 20130627
  Serious: Yes (Death)
  Sender: FDA-Public Use
  Company Number: US-ROCHE-1086850

PATIENT
  Sex: Male

DRUGS (1)
  1. RITUXAN [Suspect]
     Indication: LYMPHOMA
     Route: 065

REACTIONS (3)
  - Atrial fibrillation [Fatal]
  - Sepsis [Fatal]
  - Cerebrovascular accident [Fatal]
